FAERS Safety Report 7814813-7 (Version None)
Quarter: 2011Q4

REPORT INFORMATION
  Report Type: 
  Country: None (occurrence: None)
  Receive Date: 20111013
  Receipt Date: 20111013
  Transmission Date: 20120403
  Serious: Yes (Life-Threatening, Hospitalization)
  Sender: FDA-Public Use
  Company Number: None

PATIENT
  Sex: Male
  Weight: 68.0396 kg

DRUGS (1)
  1. AMLODIPINE [Suspect]
     Indication: BLOOD PRESSURE
     Dosage: AMLODIPINE - BENAZ 2.5 / 10 MG 1 CAPSULE DAILY
     Dates: start: 20110818

REACTIONS (2)
  - LOSS OF CONSCIOUSNESS [None]
  - BLOOD PRESSURE DECREASED [None]
